FAERS Safety Report 10155338 (Version 2)
Quarter: 2014Q2

REPORT INFORMATION
  Report Type: Spontaneous
  Country: US (occurrence: US)
  Receive Date: 20140506
  Receipt Date: 20140605
  Transmission Date: 20141212
  Serious: Yes (Other)
  Sender: FDA-Public Use
  Company Number: US-ABBVIE-14P-163-1230835-00

PATIENT
  Age: 50 Year
  Sex: Male

DRUGS (3)
  1. ANDROGEL [Suspect]
     Indication: BLOOD TESTOSTERONE DECREASED
  2. TESTIM [Suspect]
     Indication: BLOOD TESTOSTERONE DECREASED
  3. AXIRON [Suspect]
     Indication: BLOOD TESTOSTERONE DECREASED

REACTIONS (3)
  - Myocardial infarction [Unknown]
  - Injury [Unknown]
  - Economic problem [Unknown]
